FAERS Safety Report 7200244 (Version 7)
Quarter: 2013Q1

REPORT INFORMATION
  Report Type: Spontaneous
  Country: GB (occurrence: GB)
  Receive Date: 20091204
  Receipt Date: 20130218
  Transmission Date: 20140127
  Serious: Yes (Other)
  Sender: FDA-Public Use
  Company Number: PHFR2004GB03440

PATIENT
  Age: 24 Year
  Sex: Male

DRUGS (2)
  1. CLOZARIL [Suspect]
     Indication: SCHIZOPHRENIA
     Dosage: UNK UKN, UNK
     Dates: start: 20050916
  2. CLOZARIL [Suspect]
     Dosage: 250 MG DAILY
     Route: 048
     Dates: start: 20071211, end: 20090717

REACTIONS (2)
  - Mean cell volume decreased [Not Recovered/Not Resolved]
  - Drooling [Not Recovered/Not Resolved]
